FAERS Safety Report 8581645-4 (Version None)
Quarter: 2012Q3

REPORT INFORMATION
  Report Type: 
  Country: None (occurrence: None)
  Receive Date: 20120801
  Receipt Date: 20120801
  Transmission Date: 20120928
  Serious: Yes (Disabling)
  Sender: FDA-Public Use
  Company Number: None

PATIENT
  Sex: Female

DRUGS (2)
  1. SYNTHROID [Concomitant]
  2. AFRIN [Suspect]
     Indication: NASOPHARYNGITIS
     Dosage: ONCE A DAY PO
     Route: 048
     Dates: start: 20120607, end: 20120608

REACTIONS (2)
  - ANOSMIA [None]
  - AGEUSIA [None]
